FAERS Safety Report 23591985 (Version 5)
Quarter: 2024Q2

REPORT INFORMATION
  Report Type: Report from Study
  Country: PE (occurrence: PE)
  Receive Date: 20240304
  Receipt Date: 20240607
  Transmission Date: 20240716
  Serious: Yes (Other)
  Sender: FDA-Public Use
  Company Number: PE-BAYER-2024A028535

PATIENT
  Age: 71 Year
  Sex: Male

DRUGS (3)
  1. NEXAVAR [Suspect]
     Active Substance: SORAFENIB
     Indication: Thyroid cancer metastatic
     Dosage: 400 MG, BID
     Route: 048
     Dates: start: 20240207
  2. NEXAVAR [Suspect]
     Active Substance: SORAFENIB
     Indication: Thyroid cancer metastatic
     Dosage: 200 MG, BID
     Route: 048
     Dates: end: 20240417
  3. NEXAVAR [Suspect]
     Active Substance: SORAFENIB
     Indication: Thyroid cancer metastatic
     Dosage: UNK
     Dates: end: 20240424

REACTIONS (14)
  - Incision site haemorrhage [Not Recovered/Not Resolved]
  - Gait disturbance [Not Recovered/Not Resolved]
  - Skin lesion [Not Recovered/Not Resolved]
  - Pain of skin [Not Recovered/Not Resolved]
  - Axillary mass [Not Recovered/Not Resolved]
  - Pruritus [Not Recovered/Not Resolved]
  - Skin hypertrophy [Not Recovered/Not Resolved]
  - Hyperkeratosis [Not Recovered/Not Resolved]
  - Skin exfoliation [Not Recovered/Not Resolved]
  - Grip strength decreased [Not Recovered/Not Resolved]
  - Arthralgia [Not Recovered/Not Resolved]
  - Skin exfoliation [Not Recovered/Not Resolved]
  - Hyperkeratosis [Not Recovered/Not Resolved]
  - Product supply issue [None]

NARRATIVE: CASE EVENT DATE: 20240201
